FAERS Safety Report 20318817 (Version 1)
Quarter: 2022Q1

REPORT INFORMATION
  Report Type: Spontaneous
  Country: US (occurrence: None)
  Receive Date: 20220109
  Receipt Date: 20220109
  Transmission Date: 20220423
  Serious: Yes (Other)
  Sender: FDA-Public Use
  Company Number: None

PATIENT
  Age: 69 Year
  Sex: Female
  Weight: 58.5 kg

DRUGS (1)
  1. IBANDRONATE SODIUM [Suspect]
     Active Substance: IBANDRONATE SODIUM
     Indication: Osteoporosis
     Dosage: FREQUENCY : MONTHLY;?
     Route: 048
     Dates: start: 20210801, end: 20210802

REACTIONS (5)
  - Back pain [None]
  - Hypoaesthesia [None]
  - Hypoaesthesia [None]
  - Hyperaesthesia teeth [None]
  - Neuropathy peripheral [None]

NARRATIVE: CASE EVENT DATE: 20210801
